FAERS Safety Report 11910582 (Version 1)
Quarter: 2016Q1

REPORT INFORMATION
  Report Type: Spontaneous
  Country: US (occurrence: None)
  Receive Date: 20160111
  Receipt Date: 20160111
  Transmission Date: 20160526
  Serious: Yes (Death)
  Sender: FDA-Public Use
  Company Number: None

PATIENT

DRUGS (6)
  1. GRANISETRON 1MG/ML TEVA [Suspect]
     Active Substance: GRANISETRON HYDROCHLORIDE
     Indication: AUTOIMMUNE DISORDER
     Route: 042
     Dates: start: 20150530, end: 20151101
  2. FLUOROURACIL. [Concomitant]
     Active Substance: FLUOROURACIL
  3. DEXAMETHASONE 10MG/ML [Suspect]
     Active Substance: DEXAMETHASONE SODIUM PHOSPHATE
     Indication: AUTOIMMUNE DISORDER
     Route: 042
     Dates: start: 20150530, end: 20151101
  4. AVASTIN [Concomitant]
     Active Substance: BEVACIZUMAB
  5. SOMA [Concomitant]
     Active Substance: CARISOPRODOL
  6. LEVCOVOR CA [Concomitant]

REACTIONS (1)
  - Death [None]

NARRATIVE: CASE EVENT DATE: 20151104
